FAERS Safety Report 12239231 (Version 1)
Quarter: 2016Q2

REPORT INFORMATION
  Report Type: Report from Study
  Country: US (occurrence: US)
  Receive Date: 20160405
  Receipt Date: 20160405
  Transmission Date: 20160815
  Serious: Yes (Hospitalization, Other)
  Sender: FDA-Public Use
  Company Number: US-GILEAD-2016-0203009

PATIENT
  Age: 70 Year
  Sex: Female

DRUGS (2)
  1. OXYGEN. [Concomitant]
     Active Substance: OXYGEN
  2. AMBRISENTAN [Suspect]
     Active Substance: AMBRISENTAN
     Indication: PULMONARY ARTERIAL HYPERTENSION
     Dosage: 5 MG, QD
     Route: 065
     Dates: start: 20160229

REACTIONS (8)
  - Epistaxis [Not Recovered/Not Resolved]
  - Renal impairment [Recovered/Resolved]
  - Peripheral swelling [Recovered/Resolved]
  - Cardiac failure [Recovered/Resolved]
  - Nasal dryness [Unknown]
  - Pneumonia [Recovered/Resolved]
  - Dyspnoea [Recovered/Resolved]
  - Oxygen consumption [Unknown]

NARRATIVE: CASE EVENT DATE: 20160308
